FAERS Safety Report 5509585-5 (Version None)
Quarter: 2007Q4

REPORT INFORMATION
  Report Type: 
  Country: None (occurrence: None)
  Receive Date: 20071029
  Receipt Date: 20070109
  Transmission Date: 20080405
  Serious: Yes (Hospitalization)
  Sender: FDA-Public Use
  Company Number: PHEH2007US00720

PATIENT
  Age: 53 Year
  Sex: Female

DRUGS (6)
  1. LESCOL [Suspect]
  2. CATAPRES-TTS-3 [Suspect]
     Indication: HYPERTENSION
     Dosage: 7.5 MG PATCH EVERY WEEK, TRANSDERMAL
     Route: 062
  3. HYDROCHLOROTHIAZIDE [Concomitant]
  4. DIOVAN [Concomitant]
  5. DARVOCET-N 100 [Concomitant]
  6. DICYCLOMINE [Concomitant]

REACTIONS (4)
  - ANXIETY [None]
  - CHEST PAIN [None]
  - DYSPNOEA [None]
  - FLUSHING [None]
